FAERS Safety Report 8695912 (Version 2)
Quarter: 2013Q4

REPORT INFORMATION
  Report Type: Spontaneous
  Country: US (occurrence: US)
  Receive Date: 20120801
  Receipt Date: 20131101
  Transmission Date: 20140711
  Serious: Yes (Life-Threatening, Hospitalization)
  Sender: FDA-Public Use
  Company Number: US-009507513-1207USA009899

PATIENT
  Age: 55 Year
  Sex: Male

DRUGS (4)
  1. ZOCOR [Suspect]
     Dosage: 40 MG, UNK
     Route: 048
  2. CIPROFLOXACIN [Interacting]
     Dosage: UNK
  3. RAMIPRIL [Concomitant]
     Dosage: 5 MG, UNK
  4. CARVEDILOL [Concomitant]
     Dosage: 6.25 MG, UNK

REACTIONS (2)
  - Rhabdomyolysis [Unknown]
  - Drug interaction [Unknown]
